FAERS Safety Report 10751336 (Version 1)
Quarter: 2015Q1

REPORT INFORMATION
  Report Type: Spontaneous
  Country: ES (occurrence: ES)
  Receive Date: 20150130
  Receipt Date: 20150130
  Transmission Date: 20150721
  Serious: Yes (Death, Hospitalization, Other)
  Sender: FDA-Public Use
  Company Number: ES-CELGENE-ESP-2014104244

PATIENT
  Sex: Female
  Weight: 77 kg

DRUGS (5)
  1. DEXAMETHASONE. [Suspect]
     Active Substance: DEXAMETHASONE
     Indication: PLASMA CELL MYELOMA
     Route: 065
  2. VALSARTAN. [Concomitant]
     Active Substance: VALSARTAN
     Indication: HYPERTENSION
     Route: 065
  3. DEXAMETHASONE. [Suspect]
     Active Substance: DEXAMETHASONE
     Route: 065
  4. REVLIMID [Suspect]
     Active Substance: LENALIDOMIDE
     Indication: PLASMA CELL MYELOMA
     Route: 048
  5. REVLIMID [Suspect]
     Active Substance: LENALIDOMIDE
     Dosage: DOSE REDUCED
     Route: 048

REACTIONS (10)
  - Pulmonary embolism [Unknown]
  - Diverticulitis [Unknown]
  - Deep vein thrombosis [Unknown]
  - Influenza A virus test [Unknown]
  - Bronchitis [Unknown]
  - Neutropenia [Recovered/Resolved]
  - Plasma cell myeloma [Fatal]
  - Gastroenteritis [Unknown]
  - Neutropenia [Unknown]
  - Herpes zoster [Unknown]
